FAERS Safety Report 11300799 (Version 1)
Quarter: 2015Q3

REPORT INFORMATION
  Report Type: Spontaneous
  Country: US (occurrence: None)
  Receive Date: 20150723
  Receipt Date: 20150723
  Transmission Date: 20151125
  Serious: Yes (Other)
  Sender: FDA-Public Use
  Company Number: None

PATIENT
  Age: 11 Year
  Sex: Male

DRUGS (2)
  1. KAPVAY [Suspect]
     Active Substance: CLONIDINE HYDROCHLORIDE
     Indication: ATTENTION DEFICIT/HYPERACTIVITY DISORDER
     Dates: start: 20150704, end: 20150722
  2. KAPVAY [Suspect]
     Active Substance: CLONIDINE HYDROCHLORIDE
     Indication: AUTISM
     Dates: start: 20150704, end: 20150722

REACTIONS (6)
  - Insomnia [None]
  - Product substitution issue [None]
  - Impulsive behaviour [None]
  - Aggression [None]
  - Condition aggravated [None]
  - Excessive masturbation [None]

NARRATIVE: CASE EVENT DATE: 20150722
